FAERS Safety Report 5778025-3 (Version None)
Quarter: 2008Q2

REPORT INFORMATION
  Report Type: 
  Country: None (occurrence: None)
  Receive Date: 20080619
  Receipt Date: 20080609
  Transmission Date: 20081010
  Serious: Yes (Hospitalization, Other)
  Sender: FDA-Public Use
  Company Number: US-JNJFOC-20080602680

PATIENT
  Sex: Female
  Weight: 63.5 kg

DRUGS (10)
  1. FENTANYL TRANSDERMAL SYSTEM [Suspect]
     Indication: GASTROINTESTINAL PAIN
     Route: 062
  2. FENTANYL TRANSDERMAL SYSTEM [Suspect]
     Indication: GASTROINTESTINAL PAIN
     Route: 062
  3. ASPIRIN [Concomitant]
     Route: 048
  4. PREDNISONE TAB [Concomitant]
     Route: 048
  5. PLAQUENIL [Concomitant]
     Indication: SJOGREN'S SYNDROME
     Route: 048
  6. SYNTHROID [Concomitant]
     Indication: HYPOTHYROIDISM
     Route: 048
  7. RESTORIL [Concomitant]
     Dosage: AT NIGHT
     Route: 048
  8. CIPROFLOXACIN [Concomitant]
     Indication: DIARRHOEA
  9. DILAUDID [Concomitant]
     Indication: BREAKTHROUGH PAIN
     Route: 048
  10. METRONIDAZOLE [Concomitant]
     Indication: DIARRHOEA
     Route: 048

REACTIONS (5)
  - ABDOMINAL PAIN UPPER [None]
  - ABSCESS [None]
  - RECTAL HAEMORRHAGE [None]
  - VOMITING [None]
  - WRONG TECHNIQUE IN DRUG USAGE PROCESS [None]
